APPROVED DRUG PRODUCT: BENICAR
Active Ingredient: OLMESARTAN MEDOXOMIL
Strength: 5MG
Dosage Form/Route: TABLET;ORAL
Application: N021286 | Product #001 | TE Code: AB
Applicant: COSETTE PHARMACEUTICALS INC
Approved: Apr 25, 2002 | RLD: Yes | RS: No | Type: RX